FAERS Safety Report 10731680 (Version 1)
Quarter: 2015Q1

REPORT INFORMATION
  Report Type: Report from Study
  Country: US (occurrence: US)
  Receive Date: 20150123
  Receipt Date: 20150123
  Transmission Date: 20150721
  Serious: No
  Sender: FDA-Public Use
  Company Number: US-AMGEN INC.-USASL2015005352

PATIENT
  Age: 30 Year
  Sex: Male

DRUGS (1)
  1. ENBREL [Suspect]
     Active Substance: ETANERCEPT
     Indication: PYREXIA
     Dosage: 50 MGE VERY 7DAYS
     Route: 058
     Dates: start: 201412

REACTIONS (1)
  - Injection site haemorrhage [Unknown]
